FAERS Safety Report 5163064-6 (Version None)
Quarter: 2006Q4

REPORT INFORMATION
  Report Type: 
  Country: None (occurrence: None)
  Receive Date: 20061201
  Receipt Date: 20061123
  Transmission Date: 20070319
  Serious: Yes (Hospitalization)
  Sender: FDA-Public Use
  Company Number: CL-ABBOTT-06P-034-0351522-00

PATIENT
  Sex: Male

DRUGS (4)
  1. KALETRA [Suspect]
     Indication: HIV INFECTION
     Dosage: 800/400
     Route: 048
     Dates: start: 20060901, end: 20061122
  2. DIDANOSINE [Concomitant]
     Indication: HIV INFECTION
  3. ABACAVIR [Concomitant]
     Indication: HIV INFECTION
  4. EFAVIRENZ [Concomitant]
     Indication: HIV INFECTION

REACTIONS (4)
  - ABDOMINAL PAIN [None]
  - BACK PAIN [None]
  - BLOOD TRIGLYCERIDES INCREASED [None]
  - GENERAL PHYSICAL HEALTH DETERIORATION [None]
